FAERS Safety Report 7381763-2 (Version None)
Quarter: 2011Q1

REPORT INFORMATION
  Report Type: 
  Country: None (occurrence: None)
  Receive Date: 20110329
  Receipt Date: 20101013
  Transmission Date: 20110831
  Serious: Yes (Other)
  Sender: FDA-Public Use
  Company Number: US-BAYER-201019548NA

PATIENT
  Sex: Female
  Weight: 59.091 kg

DRUGS (8)
  1. EVENING PRIMROSE OIL [Concomitant]
     Route: 048
  2. AMOXICILLIN [Concomitant]
     Dosage: UNK
     Dates: start: 20090810
  3. YAZ [Suspect]
     Indication: ORAL CONTRACEPTION
     Route: 048
     Dates: start: 20090707, end: 20090810
  4. ONE-A-DAY [MINERALS NOS,VITAMINS NOS] [Concomitant]
     Route: 048
     Dates: start: 19850101
  5. EVENING PRIMROSE OIL [Concomitant]
     Route: 048
  6. ONE A DAY [Concomitant]
     Indication: VITAMIN SUPPLEMENTATION
     Route: 048
     Dates: start: 19850101
  7. ADVIL LIQUI-GELS [Concomitant]
     Route: 048
  8. ANTIBIOTICS [Concomitant]
     Route: 065

REACTIONS (2)
  - CEREBRAL HAEMORRHAGE [None]
  - INTRACRANIAL VENOUS SINUS THROMBOSIS [None]
